FAERS Safety Report 16058643 (Version 1)
Quarter: 2019Q1

REPORT INFORMATION
  Report Type: Spontaneous
  Country: US (occurrence: US)
  Receive Date: 20190311
  Receipt Date: 20190311
  Transmission Date: 20190418
  Serious: Yes (Hospitalization)
  Sender: FDA-Public Use
  Company Number: US-JNJFOC-20190309128

PATIENT
  Age: 54 Year
  Sex: Male

DRUGS (1)
  1. INVOKANA [Suspect]
     Active Substance: CANAGLIFLOZIN
     Indication: PRODUCT USED FOR UNKNOWN INDICATION
     Route: 048
     Dates: start: 20161114

REACTIONS (5)
  - Toe amputation [Unknown]
  - Diabetic foot [Unknown]
  - Cellulitis [Unknown]
  - Staphylococcal infection [Recovering/Resolving]
  - Osteomyelitis acute [Unknown]

NARRATIVE: CASE EVENT DATE: 20171029
